FAERS Safety Report 9372322 (Version 1)
Quarter: 2013Q2

REPORT INFORMATION
  Report Type: Report from Study
  Country: US (occurrence: US)
  Receive Date: 20130627
  Receipt Date: 20130627
  Transmission Date: 20140414
  Serious: Yes (Other)
  Sender: FDA-Public Use
  Company Number: US-MYLANLABS-2012S1020699

PATIENT
  Age: 81 Year
  Sex: Male

DRUGS (8)
  1. CLOZAPINE TABLETS [Suspect]
     Route: 048
     Dates: start: 201209, end: 20121003
  2. CLONAZEPAM [Concomitant]
  3. TRAMADOL [Concomitant]
  4. TYLENOL [Concomitant]
  5. LEXAPRO [Concomitant]
  6. PROTONIX [Concomitant]
  7. HYDROCHLOROTHIAZIDE [Concomitant]
  8. LOPRESSOR [Concomitant]

REACTIONS (2)
  - Granulocytopenia [Recovered/Resolved]
  - Leukopenia [Recovered/Resolved]
